FAERS Safety Report 12291180 (Version 1)
Quarter: 2016Q2

REPORT INFORMATION
  Report Type: Not Available
  Country: None (occurrence: US)
  Receive Date: 20160421
  Receipt Date: 20160421
  Transmission Date: 20160815
  Serious: No
  Sender: FDA-Public Use
  Company Number: US-AKORN-15334

PATIENT
  Age: 74 Year
  Sex: Female

DRUGS (1)
  1. LEVALBUTEROL HCL INHALATION SOLUTION [Suspect]
     Active Substance: LEVALBUTEROL HYDROCHLORIDE

REACTIONS (2)
  - Palpitations [None]
  - Asthenia [None]
